FAERS Safety Report 7928107-2 (Version None)
Quarter: 2011Q4

REPORT INFORMATION
  Report Type: 
  Country: None (occurrence: None)
  Receive Date: 20111118
  Receipt Date: 20111115
  Transmission Date: 20120403
  Serious: Yes (Other)
  Sender: FDA-Public Use
  Company Number: DE-GLAXOSMITHKLINE-D0073318A

PATIENT
  Sex: Male

DRUGS (3)
  1. ZYPREXA [Concomitant]
     Dosage: 10MG PER DAY
     Route: 048
  2. LAMICTAL [Concomitant]
     Dosage: 400MG PER DAY
     Route: 048
  3. TROBALT [Suspect]
     Indication: EPILEPSY
     Route: 048
     Dates: start: 20110601, end: 20110831

REACTIONS (11)
  - DIZZINESS [None]
  - STUPOR [None]
  - RASH [None]
  - HALLUCINATION [None]
  - TONGUE PARALYSIS [None]
  - DELUSION [None]
  - SPEECH DISORDER [None]
  - FATIGUE [None]
  - APHASIA [None]
  - URINARY RETENTION [None]
  - HYPERHIDROSIS [None]
